FAERS Safety Report 8971681 (Version 1)
Quarter: 2012Q4

REPORT INFORMATION
  Report Type: 
  Country: FR (occurrence: FR)
  Receive Date: 20121217
  Receipt Date: 20121217
  Transmission Date: 20130627
  Serious: Yes (Death, Hospitalization)
  Sender: FDA-Public Use
  Company Number: FR-ASTRAZENECA-2012SE92936

PATIENT
  Age: 12235 Day
  Sex: Male

DRUGS (15)
  1. XEROQUEL [Suspect]
     Indication: SCHIZOPHRENIA
     Route: 048
     Dates: start: 20120601
  2. XEROQUEL [Suspect]
     Indication: DISSOCIATIVE IDENTITY DISORDER
     Route: 048
     Dates: start: 20120601
  3. XEROQUEL [Suspect]
     Indication: SCHIZOPHRENIA
     Route: 048
     Dates: start: 20120608
  4. XEROQUEL [Suspect]
     Indication: DISSOCIATIVE IDENTITY DISORDER
     Route: 048
     Dates: start: 20120608
  5. XEROQUEL [Suspect]
     Indication: SCHIZOPHRENIA
     Route: 048
     Dates: start: 20120914
  6. XEROQUEL [Suspect]
     Indication: DISSOCIATIVE IDENTITY DISORDER
     Route: 048
     Dates: start: 20120914
  7. NOZINAN [Suspect]
     Route: 048
     Dates: start: 20120918
  8. LOXAPAC [Suspect]
     Dosage: 25 MG/ML, AS REQUIRED
     Route: 048
     Dates: start: 20120912, end: 20120923
  9. LOXAPAC [Suspect]
     Dosage: 100 DROPS GIVEN AT 17:00
     Route: 048
     Dates: start: 20120922, end: 20120922
  10. LOXAPAC [Suspect]
     Dosage: 100 DROPS GIVEN AT 12:00
     Route: 048
     Dates: start: 20120923, end: 20120923
  11. LARGACTIL [Suspect]
     Route: 048
     Dates: start: 20120623, end: 20120918
  12. LARGACTIL [Suspect]
     Dosage: 25 MG/ML, ONE AMPULE, AS REQUIRED, AT MIDDAY
     Route: 048
     Dates: start: 20120924
  13. SEGLOR [Concomitant]
     Route: 048
     Dates: start: 20120524
  14. DEPAKINE CHRONO [Concomitant]
     Route: 048
     Dates: start: 20120601
  15. TRANXENE [Concomitant]
     Route: 048
     Dates: start: 20120906

REACTIONS (2)
  - Intestinal obstruction [Fatal]
  - Pneumonia aspiration [Fatal]
